FAERS Safety Report 9590876 (Version 1)
Quarter: 2013Q4

REPORT INFORMATION
  Report Type: Spontaneous
  Country: US (occurrence: US)
  Receive Date: 20131003
  Receipt Date: 20131003
  Transmission Date: 20140711
  Serious: No
  Sender: FDA-Public Use
  Company Number: US-AMGEN-USASP2012071736

PATIENT
  Sex: Female

DRUGS (17)
  1. ENBREL [Suspect]
     Indication: PRODUCT USED FOR UNKNOWN INDICATION
     Dosage: 50 MG, QWK
     Route: 058
  2. NEULASTA [Concomitant]
     Dosage: 6MG/0.6M
  3. MIRALAX                            /00754501/ [Concomitant]
     Dosage: 3350 NF
  4. ORENCIA [Concomitant]
     Dosage: 250 MG, UNK
     Route: 058
  5. MAG OXIDE [Concomitant]
     Dosage: 400 MG, UNK
  6. TYLENOL                            /00020001/ [Concomitant]
     Dosage: UNK
  7. SOMA [Concomitant]
     Dosage: 350 MG, UNK
  8. LEVOTHYROXIN [Concomitant]
     Dosage: 25 MUG, UNK
  9. TRAMADOL HCL [Concomitant]
     Dosage: 50 MG, UNK
  10. LEFLUNOMIDE [Concomitant]
     Dosage: 10 MG, UNK
  11. PRAVASTATIN [Concomitant]
     Dosage: 20 MG, UNK
  12. CYMBALTA [Concomitant]
     Dosage: 20 MG, UNK
  13. ARAVA [Concomitant]
     Dosage: 10 MG, UNK
  14. SEROQUEL [Concomitant]
     Dosage: 100 MG, UNK
  15. MULTIVITAMINS WITH MINERALS        /90003801/ [Concomitant]
     Dosage: UNK
  16. CLONAZEPAM [Concomitant]
     Dosage: 0.5 MG, UNK
  17. MIRTAZAPINE [Concomitant]
     Dosage: 15 MG, UNK

REACTIONS (1)
  - Therapeutic response decreased [Unknown]
